FAERS Safety Report 4589782-6 (Version None)
Quarter: 2005Q1

REPORT INFORMATION
  Report Type: 
  Country: None (occurrence: None)
  Receive Date: 20050223
  Receipt Date: 20050203
  Transmission Date: 20050727
  Serious: Yes (Hospitalization)
  Sender: FDA-Public Use
  Company Number: US-GLAXOSMITHKLINE-A0543712A

PATIENT
  Age: 83 Year
  Sex: Female

DRUGS (5)
  1. ADVAIR DISKUS 100/50 [Suspect]
     Indication: EMPHYSEMA
     Dosage: 2PUFF TWICE PER DAY
     Route: 055
  2. ALBUTEROL [Concomitant]
  3. OXYGEN [Concomitant]
  4. LANOXIN [Concomitant]
  5. FOSAMAX [Concomitant]

REACTIONS (4)
  - BONE DENSITY DECREASED [None]
  - HAEMOPTYSIS [None]
  - LOWER LIMB FRACTURE [None]
  - WRIST FRACTURE [None]
